FAERS Safety Report 17604814 (Version 1)
Quarter: 2020Q1

REPORT INFORMATION
  Report Type: Spontaneous
  Country: US (occurrence: US)
  Receive Date: 20200331
  Receipt Date: 20200331
  Transmission Date: 20200409
  Serious: No
  Sender: FDA-Public Use
  Company Number: US-ELI_LILLY_AND_COMPANY-US202003013479

PATIENT
  Sex: Female

DRUGS (5)
  1. VERZENIO [Suspect]
     Active Substance: ABEMACICLIB
     Dosage: 50 UNK
     Route: 048
  2. TRASTUZUMAB. [Concomitant]
     Active Substance: TRASTUZUMAB
     Indication: BREAST CANCER METASTATIC
  3. VERZENIO [Suspect]
     Active Substance: ABEMACICLIB
     Indication: BREAST CANCER METASTATIC
     Dosage: 50 MG, BID
     Dates: start: 20200309
  4. FULVESTRANT. [Concomitant]
     Active Substance: FULVESTRANT
     Indication: BREAST CANCER METASTATIC
  5. VERZENIO [Suspect]
     Active Substance: ABEMACICLIB
     Dosage: 100 MG, BID
     Route: 048

REACTIONS (2)
  - Abdominal pain [Not Recovered/Not Resolved]
  - Headache [Recovering/Resolving]
